FAERS Safety Report 20160618 (Version 1)
Quarter: 2021Q4

REPORT INFORMATION
  Report Type: Spontaneous
  Country: ES (occurrence: None)
  Receive Date: 20211208
  Receipt Date: 20211208
  Transmission Date: 20220303
  Serious: Yes (Hospitalization)
  Sender: FDA-Public Use
  Company Number: 2021A848726

PATIENT
  Age: 63 Year
  Sex: Female

DRUGS (10)
  1. OMEPRAZOLE [Suspect]
     Active Substance: OMEPRAZOLE
     Indication: Product used for unknown indication
     Dosage: 20.0MG UNKNOWN
     Route: 048
     Dates: start: 20091008
  2. ESIDREX [Suspect]
     Active Substance: HYDROCHLOROTHIAZIDE
     Indication: Essential hypertension
     Dosage: 25 MG25.0MG UNKNOWN
     Route: 048
     Dates: start: 20170721
  3. ATORVASTATIN CALCIUM [Concomitant]
     Active Substance: ATORVASTATIN CALCIUM
     Indication: Diabetes mellitus
     Dosage: 20 MG20.0MG UNKNOWN
     Route: 048
     Dates: start: 20091007
  4. ONGLYZA [Concomitant]
     Active Substance: SAXAGLIPTIN HYDROCHLORIDE
     Indication: Diabetes mellitus
     Dosage: 5 MG, Q24H
     Route: 048
     Dates: start: 20140228
  5. FOLIC ACID [Concomitant]
     Active Substance: FOLIC ACID
     Indication: Pernicious anaemia
     Dosage: 5 MG5.0MG UNKNOWN
     Route: 048
     Dates: start: 20210713
  6. ASPIRIN [Concomitant]
     Active Substance: ASPIRIN
     Indication: Product used for unknown indication
     Dosage: 100 MG100.0MG UNKNOWN
     Route: 048
     Dates: start: 20091007
  7. LEVETIRACETAM [Concomitant]
     Active Substance: LEVETIRACETAM
     Indication: Epilepsy
     Dosage: 500 MG500.0MG UNKNOWN
     Route: 048
     Dates: start: 20210712
  8. METOPROLOL KRKA [Concomitant]
     Indication: Essential hypertension
     Dosage: 100 MG100.0MG UNKNOWN
     Route: 048
     Dates: start: 20091008
  9. XIGDUO XR [Concomitant]
     Active Substance: DAPAGLIFLOZIN PROPANEDIOL\METFORMIN HYDROCHLORIDE
     Indication: Diabetes mellitus
     Dosage: 1 DF, Q12H
     Route: 048
     Dates: start: 20091007
  10. CIMASCAL [Concomitant]
     Indication: Product used for unknown indication
     Dosage: 1.5 G1.5G UNKNOWN
     Route: 048
     Dates: start: 20210712

REACTIONS (3)
  - Hypomagnesaemia [Recovering/Resolving]
  - Seizure [Recovering/Resolving]
  - Hypocalcaemia [Recovering/Resolving]

NARRATIVE: CASE EVENT DATE: 20211109
